FAERS Safety Report 20670774 (Version 1)
Quarter: 2022Q2

REPORT INFORMATION
  Report Type: Spontaneous
  Country: US (occurrence: None)
  Receive Date: 20220401
  Receipt Date: 20220401
  Transmission Date: 20220721
  Serious: Yes (Hospitalization, Disabling)
  Sender: FDA-Public Use
  Company Number: None

PATIENT
  Age: 8 Year
  Sex: Female

DRUGS (5)
  1. MYCOPHENOLIC ACID [Suspect]
     Active Substance: MYCOPHENOLIC ACID
     Indication: Renal transplant
     Dosage: FREQUENCY : TWICE A DAY;?
     Route: 048
     Dates: start: 2017
  2. TACROLIMUS [Suspect]
     Active Substance: TACROLIMUS
  3. sodium bicarbonate 10 grain [Concomitant]
  4. sodium chloride 1 gram [Concomitant]
  5. ferrous sulfate 15 mg/ml [Concomitant]

REACTIONS (5)
  - Blood creatinine increased [None]
  - Urinary tract infection [None]
  - Gastric cyst [None]
  - Abscess [None]
  - Neutropenia [None]

NARRATIVE: CASE EVENT DATE: 20220310
